FAERS Safety Report 7508218-6 (Version None)
Quarter: 2011Q2

REPORT INFORMATION
  Report Type: 
  Country: None (occurrence: None)
  Receive Date: 20110519
  Receipt Date: 20110503
  Transmission Date: 20111010
  Serious: Yes (Death, Hospitalization, Other)
  Sender: FDA-Public Use
  Company Number: CRC-11-049

PATIENT
  Age: 72 Year
  Sex: Female

DRUGS (1)
  1. DIGOXIN [Suspect]
     Indication: ATRIAL FIBRILLATION

REACTIONS (13)
  - TOXICITY TO VARIOUS AGENTS [None]
  - ASTHENIA [None]
  - HAEMOGLOBIN DECREASED [None]
  - ANXIETY [None]
  - NERVOUS SYSTEM DISORDER [None]
  - BRADYCARDIA [None]
  - DYSPNOEA [None]
  - PRESYNCOPE [None]
  - SYNCOPE [None]
  - CARDIAC MURMUR [None]
  - MALAISE [None]
  - PALLOR [None]
  - RENAL FAILURE [None]
